FAERS Safety Report 12737659 (Version 5)
Quarter: 2018Q1

REPORT INFORMATION
  Report Type: Report from Study
  Country: None (occurrence: IL)
  Receive Date: 20160913
  Receipt Date: 20180313
  Transmission Date: 20180508
  Serious: Yes (Hospitalization, Other)
  Sender: FDA-Public Use
  Company Number: IL-ABBVIE-16K-082-1724884-00

PATIENT
  Age: 82 Year
  Sex: Male

DRUGS (1)
  1. DUODOPA [Suspect]
     Active Substance: CARBIDOPA\LEVODOPA
     Indication: PARKINSON^S DISEASE
     Dosage: AM DOSE-7.5 ML, CURRENT FIXED RATE- 2.8 ML/HR, CURRENT EXTRA DOSE- 1.5 ML
     Route: 050
     Dates: start: 20130410

REACTIONS (8)
  - Pancytopenia [Not Recovered/Not Resolved]
  - Lung neoplasm malignant [Recovering/Resolving]
  - Renal cancer metastatic [Recovering/Resolving]
  - Pneumonia [Recovering/Resolving]
  - Prostate cancer metastatic [Recovering/Resolving]
  - Speech disorder [Recovering/Resolving]
  - Pyrexia [Recovered/Resolved]
  - Asthenia [Recovering/Resolving]

NARRATIVE: CASE EVENT DATE: 20170420
